FAERS Safety Report 10024656 (Version 7)
Quarter: 2015Q1

REPORT INFORMATION
  Report Type: Spontaneous
  Country: US (occurrence: US)
  Receive Date: 20140320
  Receipt Date: 20150306
  Transmission Date: 20150720
  Serious: Yes (Death, Hospitalization, Other)
  Sender: FDA-Public Use
  Company Number: US-009507513-1403USA009014

PATIENT
  Sex: Male
  Weight: 154.2 kg

DRUGS (4)
  1. JANUMET [Suspect]
     Active Substance: METFORMIN HYDROCHLORIDE\SITAGLIPTIN PHOSPHATE
     Indication: TYPE 2 DIABETES MELLITUS
     Dosage: 40/100 MG, QD
     Route: 048
     Dates: start: 20121020, end: 20131002
  2. JANUVIA [Suspect]
     Active Substance: SITAGLIPTIN PHOSPHATE
     Indication: TYPE 2 DIABETES MELLITUS
     Dosage: 100 MG, QD
     Route: 048
     Dates: start: 20110411, end: 20111104
  3. JANUVIA [Suspect]
     Active Substance: SITAGLIPTIN PHOSPHATE
     Dosage: 100 MG, QD
     Route: 048
     Dates: start: 20111216
  4. JANUMET [Suspect]
     Active Substance: METFORMIN HYDROCHLORIDE\SITAGLIPTIN PHOSPHATE
     Dosage: 50/1000 MG, BID
     Route: 048
     Dates: start: 20120806, end: 20131002

REACTIONS (27)
  - Metastases to lung [Unknown]
  - Sleep apnoea syndrome [Unknown]
  - Pancreatic carcinoma [Fatal]
  - Peripheral swelling [Unknown]
  - Erectile dysfunction [Unknown]
  - Respiratory depression [Unknown]
  - Syncope [Unknown]
  - Tonsillectomy [Unknown]
  - Deep vein thrombosis [Unknown]
  - Metastases to peritoneum [Unknown]
  - Dehydration [Unknown]
  - Nephrolithiasis [Unknown]
  - Gallbladder disorder [Unknown]
  - Vascular calcification [Unknown]
  - Arrhythmia [Unknown]
  - Metastases to liver [Unknown]
  - Pulmonary embolism [Unknown]
  - Lymphadenopathy [Unknown]
  - Hyperlipidaemia [Unknown]
  - Anaemia [Unknown]
  - Hypotension [Unknown]
  - Malignant ascites [Unknown]
  - Hypertension [Unknown]
  - Tumour invasion [Unknown]
  - Osteoarthritis [Unknown]
  - Adrenal disorder [Unknown]
  - Constipation [Unknown]

NARRATIVE: CASE EVENT DATE: 20120720
